FAERS Safety Report 23602038 (Version 1)
Quarter: 2024Q1

REPORT INFORMATION
  Report Type: Spontaneous
  Country: US (occurrence: US)
  Receive Date: 20240306
  Receipt Date: 20240306
  Transmission Date: 20240410
  Serious: No
  Sender: FDA-Public Use
  Company Number: US-SA-SAC20240301001109

PATIENT
  Age: 67 Year
  Sex: Male

DRUGS (1)
  1. KEVZARA [Suspect]
     Active Substance: SARILUMAB
     Indication: Polymyalgia rheumatica
     Dosage: DOSE- 200 MG, FREQUENCY- EVERY OTHER WEEK
     Route: 058
     Dates: start: 20231128

REACTIONS (3)
  - Blood cholesterol increased [Unknown]
  - White blood cell count decreased [Unknown]
  - Drug ineffective [Unknown]
